FAERS Safety Report 8625068-8 (Version None)
Quarter: 2012Q3

REPORT INFORMATION
  Report Type: 
  Country: None (occurrence: None)
  Receive Date: 20120827
  Receipt Date: 20120824
  Transmission Date: 20120928
  Serious: Yes (Hospitalization)
  Sender: FDA-Public Use
  Company Number: DK-009507513-1208DNK010013

PATIENT

DRUGS (12)
  1. NOVORAPID [Concomitant]
  2. INVANZ [Suspect]
     Indication: PNEUMONIA
     Dosage: STYRKE: 1 G/DOSIS
     Route: 042
     Dates: start: 20120707, end: 20120716
  3. SEROQUEL [Concomitant]
  4. ACETAMINOPHEN [Concomitant]
  5. CORDARONE [Concomitant]
  6. CIPROFLOXACIN [Suspect]
     Indication: PNEUMONIA
     Dosage: STYRKE: 2MG/ML
     Route: 042
     Dates: start: 20120708, end: 20120716
  7. OXAZEPAM [Concomitant]
  8. FELODIPINE [Concomitant]
  9. GLICLAZIDE [Concomitant]
  10. SIMVASTATIN [Concomitant]
  11. INNOHEP [Concomitant]
  12. LAKTULOSE MEDIC [Concomitant]

REACTIONS (1)
  - THROMBOCYTOSIS [None]
